FAERS Safety Report 9983335 (Version 3)
Quarter: 2015Q3

REPORT INFORMATION
  Report Type: Spontaneous
  Country: VN (occurrence: VN)
  Receive Date: 20140307
  Receipt Date: 20150716
  Transmission Date: 20151125
  Serious: Yes (Hospitalization)
  Sender: FDA-Public Use
  Company Number: PHHY2014VN027936

PATIENT
  Age: 57 Year
  Sex: Male

DRUGS (1)
  1. ZOMETA [Suspect]
     Active Substance: ZOLEDRONIC ACID
     Indication: METASTASES TO BONE
     Dosage: 4 MG/5 ML, ONCE/SINGLE
     Route: 042
     Dates: start: 20140214

REACTIONS (5)
  - Hypocalcaemia [Recovering/Resolving]
  - Nervous system disorder [Unknown]
  - Sensory loss [Unknown]
  - Loss of consciousness [Unknown]
  - Calcium ionised decreased [Unknown]

NARRATIVE: CASE EVENT DATE: 20140214
